FAERS Safety Report 24653629 (Version 2)
Quarter: 2025Q1

REPORT INFORMATION
  Report Type: Spontaneous
  Country: GB (occurrence: GB)
  Receive Date: 20241122
  Receipt Date: 20250122
  Transmission Date: 20250408
  Serious: Yes (Hospitalization)
  Sender: VERTEX
  Company Number: GB-VERTEX PHARMACEUTICALS-2024-018081

PATIENT
  Sex: Male

DRUGS (2)
  1. ELEXACAFTOR\IVACAFTOR\TEZACAFTOR [Suspect]
     Active Substance: ELEXACAFTOR\IVACAFTOR\TEZACAFTOR
     Indication: Cystic fibrosis
     Dosage: 75MG IVACAFTOR/50MG TEZACAFTOR/ 100MG ELEXACAFTOR, TAKE TWO TABLETS IN THE MORNING
     Route: 048
  2. KALYDECO [Suspect]
     Active Substance: IVACAFTOR
     Indication: Cystic fibrosis
     Route: 048

REACTIONS (1)
  - Mental disorder [Unknown]
